FAERS Safety Report 8968047 (Version 1)
Quarter: 2012Q4

REPORT INFORMATION
  Report Type: 
  Country: IE (occurrence: IE)
  Receive Date: 20121218
  Receipt Date: 20121218
  Transmission Date: 20130627
  Serious: Yes (Other)
  Sender: FDA-Public Use
  Company Number: IE-ELI_LILLY_AND_COMPANY-IE201212002034

PATIENT
  Age: 65 Year
  Sex: Male

DRUGS (3)
  1. EFIENT [Suspect]
     Dosage: 1 DF, qd
     Route: 048
     Dates: start: 20110917, end: 20120901
  2. NU-SEALS ASPIRIN [Concomitant]
     Dosage: 75 mg, qd
     Route: 048
     Dates: start: 20110917, end: 20121124
  3. CRESTOR [Concomitant]
     Dosage: 5 mg, qd
     Route: 048
     Dates: start: 20120817, end: 20121124

REACTIONS (2)
  - Arthritis [Not Recovered/Not Resolved]
  - Contusion [Not Recovered/Not Resolved]
